FAERS Safety Report 10733484 (Version 2)
Quarter: 2015Q1

REPORT INFORMATION
  Report Type: Report from Study
  Country: US (occurrence: US)
  Receive Date: 20150123
  Receipt Date: 20150324
  Transmission Date: 20150721
  Serious: Yes (Hospitalization, Other)
  Sender: FDA-Public Use
  Company Number: US-SA-2014SA176972

PATIENT
  Age: 62 Year
  Sex: Female

DRUGS (3)
  1. AUBAGIO [Suspect]
     Active Substance: TERIFLUNOMIDE
     Indication: MULTIPLE SCLEROSIS
     Route: 048
     Dates: start: 20141211
  2. AUBAGIO [Suspect]
     Active Substance: TERIFLUNOMIDE
     Indication: MULTIPLE SCLEROSIS
     Route: 048
     Dates: start: 20141113, end: 20141210
  3. AUBAGIO [Suspect]
     Active Substance: TERIFLUNOMIDE
     Indication: MULTIPLE SCLEROSIS
     Route: 048

REACTIONS (7)
  - Thrombosis [Unknown]
  - Ulcer [Unknown]
  - Middle insomnia [Unknown]
  - Diarrhoea [Recovered/Resolved]
  - Colitis microscopic [Unknown]
  - Dehydration [Unknown]
  - Headache [Unknown]

NARRATIVE: CASE EVENT DATE: 201412
